FAERS Safety Report 4531465-2 (Version None)
Quarter: 2004Q4

REPORT INFORMATION
  Report Type: 
  Country: None (occurrence: None)
  Receive Date: 20041216
  Receipt Date: 20041210
  Transmission Date: 20050328
  Serious: Yes (Death)
  Sender: FDA-Public Use
  Company Number: 200421152BWH

PATIENT
  Age: 80 Year
  Sex: Female

DRUGS (1)
  1. TRASYLOL [Suspect]
     Indication: AORTIC SURGERY
     Dates: start: 20041201

REACTIONS (2)
  - RENAL FAILURE [None]
  - THROMBOSIS [None]
